FAERS Safety Report 9651522 (Version 1)
Quarter: 2013Q4

REPORT INFORMATION
  Report Type: Spontaneous
  Country: US (occurrence: US)
  Receive Date: 20131029
  Receipt Date: 20131029
  Transmission Date: 20140711
  Serious: Yes (Other)
  Sender: FDA-Public Use
  Company Number: US-JNJFOC-20131015014

PATIENT
  Age: 57 Year
  Sex: Male
  Weight: 96.6 kg

DRUGS (13)
  1. XARELTO [Suspect]
     Indication: DEEP VEIN THROMBOSIS
     Route: 048
  2. LISINOPRIL [Concomitant]
     Route: 048
  3. AMLODIPINE [Concomitant]
     Route: 048
  4. FUROSEMIDE [Concomitant]
     Route: 048
  5. NEXIUM [Concomitant]
     Route: 048
  6. TIZANIDINE [Concomitant]
     Route: 048
  7. AMITRIPTYLINE [Concomitant]
     Route: 048
  8. METOPROLOL [Concomitant]
     Route: 048
  9. GABAPENTIN [Concomitant]
     Route: 048
  10. METHADONE [Concomitant]
     Route: 048
  11. HYDROMORPHONE [Concomitant]
     Route: 048
  12. OXYCODONE [Concomitant]
     Route: 048
  13. PERCOCET [Concomitant]
     Dosage: 5-325 MG
     Route: 048

REACTIONS (2)
  - Humerus fracture [Not Recovered/Not Resolved]
  - Injury [Recovered/Resolved]
